FAERS Safety Report 24636616 (Version 1)
Quarter: 2024Q4

REPORT INFORMATION
  Report Type: Report from Study
  Country: SE (occurrence: SE)
  Receive Date: 20241119
  Receipt Date: 20241119
  Transmission Date: 20250114
  Serious: Yes (Other)
  Sender: MYLAN
  Company Number: SE-MYLANLABS-2024M1103511

PATIENT
  Age: 33 Year
  Sex: Female

DRUGS (1)
  1. SERTRALINE [Suspect]
     Active Substance: SERTRALINE HYDROCHLORIDE
     Indication: Product used for unknown indication
     Dosage: UNK
     Route: 065

REACTIONS (5)
  - Multiple acyl-coenzyme A dehydrogenase deficiency [Recovering/Resolving]
  - Sensory disturbance [Recovering/Resolving]
  - Lipid metabolism disorder [Recovering/Resolving]
  - Myopathy [Recovering/Resolving]
  - Peripheral sensory neuropathy [Recovering/Resolving]
